FAERS Safety Report 7268763-8 (Version None)
Quarter: 2011Q1

REPORT INFORMATION
  Report Type: 
  Country: None (occurrence: None)
  Receive Date: 20110201
  Receipt Date: 20110120
  Transmission Date: 20110831
  Serious: Yes (Other)
  Sender: FDA-Public Use
  Company Number: PHHY2011FR04750

PATIENT
  Sex: Female
  Weight: 60 kg

DRUGS (4)
  1. GLEEVEC [Suspect]
     Dosage: 400 MG, UNK
     Dates: start: 20050101
  2. TASIGNA [Suspect]
     Indication: CHRONIC MYELOID LEUKAEMIA
     Dosage: 800 MG,DAILY
     Route: 048
     Dates: start: 20070706, end: 20100129
  3. SPRYCEL [Suspect]
     Indication: CHRONIC MYELOID LEUKAEMIA
     Dosage: 100 MG, UNK
     Route: 048
     Dates: start: 20060526, end: 20070301
  4. GLEEVEC [Suspect]
     Dosage: 600 MG, UNK
     Route: 048
     Dates: end: 20060525

REACTIONS (1)
  - TRANSIENT ISCHAEMIC ATTACK [None]
